FAERS Safety Report 13916632 (Version 4)
Quarter: 2018Q1

REPORT INFORMATION
  Report Type: Report from Study
  Country: CA (occurrence: CA)
  Receive Date: 20170829
  Receipt Date: 20180109
  Transmission Date: 20180508
  Serious: Yes (Hospitalization, Other)
  Sender: FDA-Public Use
  Company Number: CA-JNJFOC-20170808583

PATIENT
  Age: 52 Year
  Sex: Female
  Weight: 67 kg

DRUGS (2)
  1. REMICADE [Suspect]
     Active Substance: INFLIXIMAB
     Indication: CROHN^S DISEASE
     Dosage: STRENGTH = 100 MG
     Route: 042
     Dates: start: 20040201
  2. REMICADE [Suspect]
     Active Substance: INFLIXIMAB
     Indication: CROHN^S DISEASE
     Route: 042

REACTIONS (5)
  - Diarrhoea [Recovered/Resolved]
  - Osteitis [Unknown]
  - Gastrointestinal neoplasm [Recovered/Resolved]
  - Kidney infection [Recovered/Resolved]
  - Incision site pain [Recovered/Resolved]

NARRATIVE: CASE EVENT DATE: 201707
